FAERS Safety Report 12401228 (Version 2)
Quarter: 2016Q2

REPORT INFORMATION
  Report Type: Spontaneous
  Country: AU (occurrence: AU)
  Receive Date: 20160525
  Receipt Date: 20160609
  Transmission Date: 20160815
  Serious: Yes (Other)
  Sender: FDA-Public Use
  Company Number: AU-GLAXOSMITHKLINE-AU2016073356

PATIENT
  Age: 45 Year
  Sex: Male
  Weight: 102 kg

DRUGS (5)
  1. TESTOSTERONE. [Concomitant]
     Active Substance: TESTOSTERONE
     Indication: MUSCLE BUILDING THERAPY
  2. NICOTINE. [Suspect]
     Active Substance: NICOTINE
     Indication: PRODUCT USED FOR UNKNOWN INDICATION
     Dosage: 50 PIECES OF 2-MG NICOTINE GUM
  3. NICOTINE. [Suspect]
     Active Substance: NICOTINE
     Dosage: 50 PIECES OF 4-MG
  4. FLUVOXAMINE [Concomitant]
     Active Substance: FLUVOXAMINE
  5. DEXAMPHETAMINE [Concomitant]
     Active Substance: AMPHETAMINE
     Dosage: 30-40 MG

REACTIONS (7)
  - Drug withdrawal syndrome [Recovered/Resolved]
  - Tooth disorder [Recovered/Resolved]
  - Hyperhidrosis [Recovered/Resolved]
  - Nicotine dependence [Recovered/Resolved]
  - Drug dependence [Recovered/Resolved]
  - Overdose [Recovered/Resolved]
  - Pain in jaw [Recovered/Resolved]
